FAERS Safety Report 14837972 (Version 2)
Quarter: 2018Q2

REPORT INFORMATION
  Report Type: Spontaneous
  Country: US (occurrence: US)
  Receive Date: 20180502
  Receipt Date: 20180612
  Transmission Date: 20180711
  Serious: Yes (Other)
  Sender: FDA-Public Use
  Company Number: US-PFIZER INC-2018176366

PATIENT
  Age: 48 Year
  Sex: Female

DRUGS (3)
  1. METHOTREXATE SODIUM. [Suspect]
     Active Substance: METHOTREXATE SODIUM
     Dosage: 15 MG, UNK
     Route: 058
  2. METHOTREXATE SODIUM. [Suspect]
     Active Substance: METHOTREXATE SODIUM
     Dosage: 0.3 UNK, UNK
  3. METHOTREXATE SODIUM. [Suspect]
     Active Substance: METHOTREXATE SODIUM
     Dosage: 10 MG, UNK
     Route: 042

REACTIONS (12)
  - Respiratory tract infection [Unknown]
  - Adrenal adenoma [Unknown]
  - Cough [Recovered/Resolved]
  - Injection site reaction [Unknown]
  - Pain in extremity [Unknown]
  - Bronchiectasis [Unknown]
  - Bronchitis [Unknown]
  - Fatigue [Recovered/Resolved]
  - Abdominal discomfort [Unknown]
  - Arthralgia [Recovered/Resolved]
  - Thyroid mass [Unknown]
  - Emphysema [Unknown]
